FAERS Safety Report 7707079-X (Version None)
Quarter: 2011Q3

REPORT INFORMATION
  Report Type: 
  Country: None (occurrence: None)
  Receive Date: 20110824
  Receipt Date: 20110818
  Transmission Date: 20111222
  Serious: No
  Sender: FDA-Public Use
  Company Number: US-PFIZER INC-2007036558

PATIENT
  Sex: Female

DRUGS (3)
  1. NEURONTIN [Suspect]
     Indication: PAIN
     Dosage: 300 MG, UNK
  2. NEURONTIN [Suspect]
     Indication: ARTHRITIS
  3. NEURONTIN [Suspect]
     Dosage: 1 TABLET A DAY
     Dates: start: 20030101, end: 20040101

REACTIONS (4)
  - NERVOUSNESS [None]
  - BLOOD PRESSURE INCREASED [None]
  - AMNESIA [None]
  - HYPOAESTHESIA [None]
